FAERS Safety Report 16623247 (Version 1)
Quarter: 2019Q3

REPORT INFORMATION
  Report Type: Spontaneous
  Country: US (occurrence: US)
  Receive Date: 20190723
  Receipt Date: 20190723
  Transmission Date: 20191004
  Serious: Yes (Hospitalization, Other)
  Sender: FDA-Public Use
  Company Number: US-GLAXOSMITHKLINE-US2019GSK117335

PATIENT
  Age: 70 Year
  Sex: Male

DRUGS (2)
  1. ROPINIROLE. [Suspect]
     Active Substance: ROPINIROLE
     Indication: PARKINSON^S DISEASE
     Dosage: 12 MG, 1D
  2. LEVODOPA [Suspect]
     Active Substance: LEVODOPA
     Indication: PARKINSON^S DISEASE
     Dosage: 200 MG, TID

REACTIONS (9)
  - Poor quality sleep [Recovering/Resolving]
  - Drug withdrawal syndrome [Recovering/Resolving]
  - Delusion [Recovering/Resolving]
  - Paranoia [Recovering/Resolving]
  - Abnormal dreams [Recovering/Resolving]
  - Condition aggravated [Recovering/Resolving]
  - Psychotic disorder [Recovering/Resolving]
  - Hallucination, visual [Recovering/Resolving]
  - Parkinson^s disease [Recovering/Resolving]
